FAERS Safety Report 5545290-7 (Version None)
Quarter: 2007Q4

REPORT INFORMATION
  Report Type: 
  Country: None (occurrence: None)
  Receive Date: 20071211
  Receipt Date: 20071205
  Transmission Date: 20080405
  Serious: Yes (Other)
  Sender: FDA-Public Use
  Company Number: PHEH2007US12710

PATIENT
  Age: 72 Year
  Sex: Male

DRUGS (10)
  1. LOPRESSOR [Suspect]
     Indication: HYPERTENSION
     Dosage: 25MG BID
     Dates: start: 20070827, end: 20070924
  2. LOPRESSOR [Suspect]
     Dosage: UNK BID
     Route: 048
     Dates: start: 20060401, end: 20070820
  3. ASPIRIN [Concomitant]
     Dates: start: 20061011
  4. COZAAR [Concomitant]
     Dosage: 100MG QD
  5. NORVASC [Concomitant]
     Dosage: 10MG QD
     Dates: start: 20060401
  6. DAILY-VITE [Concomitant]
     Dates: start: 20070815
  7. PHOSLO [Concomitant]
  8. ZEMPLAR [Concomitant]
     Dosage: 4MCGIV PUSH
     Dates: start: 20070724, end: 20071015
  9. RENAGEL [Concomitant]
     Dosage: 2TABS WITH SNACKS, MEALS
     Dates: start: 20070523, end: 20070914
  10. FOSRENOL [Concomitant]
     Dosage: 1000MG WITH MEALS
     Dates: start: 20070424, end: 20070914

REACTIONS (19)
  - ANAEMIA [None]
  - BACTERAEMIA [None]
  - BLOOD CALCIUM INCREASED [None]
  - BLOOD CREATININE INCREASED [None]
  - BLOOD LACTATE DEHYDROGENASE DECREASED [None]
  - BLOOD PHOSPHORUS INCREASED [None]
  - BLOOD UREA INCREASED [None]
  - CONFUSIONAL STATE [None]
  - DIALYSIS [None]
  - FATIGUE [None]
  - HAEMATOCRIT DECREASED [None]
  - HAEMOGLOBIN DECREASED [None]
  - HYPERPARATHYROIDISM SECONDARY [None]
  - LYMPHOCYTE COUNT DECREASED [None]
  - MONOCYTE COUNT INCREASED [None]
  - MONONUCLEOSIS SYNDROME [None]
  - PANCREATIC DISORDER [None]
  - TRANSFUSION [None]
  - URINARY HESITATION [None]
